FAERS Safety Report 17421502 (Version 1)
Quarter: 2020Q1

REPORT INFORMATION
  Report Type: Not Available
  Country: MX (occurrence: MX)
  Receive Date: 20200214
  Receipt Date: 20200214
  Transmission Date: 20200409
  Serious: Yes (Other)
  Sender: FDA-Public Use
  Company Number: MX-ANIPHARMA-2020-MX-000006

PATIENT
  Sex: Female
  Weight: 64 kg

DRUGS (1)
  1. ATACAND [Suspect]
     Active Substance: CANDESARTAN CILEXETIL
     Indication: PRODUCT USED FOR UNKNOWN INDICATION
     Dosage: 16 MG DAILY
     Route: 048
     Dates: start: 20191001, end: 20200118

REACTIONS (1)
  - Blood pressure increased [Unknown]
